FAERS Safety Report 25838507 (Version 1)
Quarter: 2025Q3

REPORT INFORMATION
  Report Type: Spontaneous
  Country: US (occurrence: US)
  Receive Date: 20250923
  Receipt Date: 20250923
  Transmission Date: 20251021
  Serious: No
  Sender: Haleon PLC
  Company Number: US-HALEON-2264190

PATIENT

DRUGS (3)
  1. GAS-X [Suspect]
     Active Substance: DIMETHICONE
     Indication: Dyspepsia
  2. GAS-X [Suspect]
     Active Substance: DIMETHICONE
     Indication: Abdominal distension
  3. GAS-X [Suspect]
     Active Substance: DIMETHICONE
     Indication: Discomfort

REACTIONS (2)
  - Drug effective for unapproved indication [Unknown]
  - Product use in unapproved indication [Unknown]
